FAERS Safety Report 10071635 (Version 4)
Quarter: 2014Q2

REPORT INFORMATION
  Report Type: Spontaneous
  Country: JP (occurrence: JP)
  Receive Date: 20140411
  Receipt Date: 20140506
  Transmission Date: 20141212
  Serious: Yes (Death, Life-Threatening)
  Sender: FDA-Public Use
  Company Number: JP-ROCHE-1365812

PATIENT
  Age: 66 Year
  Sex: Male
  Weight: 61 kg

DRUGS (8)
  1. ACTEMRA [Suspect]
     Indication: RHEUMATOID ARTHRITIS
     Route: 041
     Dates: start: 20100310, end: 20140204
  2. METHOTREXATE [Suspect]
     Indication: RHEUMATOID ARTHRITIS
     Dosage: 6 - 8MG
     Route: 048
  3. PREDNISOLONE [Suspect]
     Indication: RHEUMATOID ARTHRITIS
     Route: 048
  4. BREDININ [Suspect]
     Indication: RHEUMATOID ARTHRITIS
     Route: 048
  5. CELECOX [Concomitant]
     Indication: RHEUMATOID ARTHRITIS
     Route: 048
  6. MUCOSTA [Concomitant]
     Indication: RHEUMATOID ARTHRITIS
     Route: 048
  7. PARIET [Concomitant]
     Indication: RHEUMATOID ARTHRITIS
     Route: 048
  8. VASOLAN [Concomitant]
     Indication: ATRIAL FIBRILLATION
     Route: 048

REACTIONS (3)
  - Disseminated intravascular coagulation [Fatal]
  - Pneumonia [Fatal]
  - Renal failure acute [Recovered/Resolved]
